FAERS Safety Report 4966931-9 (Version None)
Quarter: 2006Q2

REPORT INFORMATION
  Report Type: 
  Country: None (occurrence: None)
  Receive Date: 20060407
  Receipt Date: 20030605
  Transmission Date: 20061013
  Serious: Yes (Hospitalization, Disabling, Other)
  Sender: FDA-Public Use
  Company Number: US-MERCK-0306USA00860

PATIENT
  Age: 47 Year
  Sex: Male
  Weight: 123 kg

DRUGS (1)
  1. VIOXX [Suspect]
     Indication: ARTHRITIS
     Route: 048
     Dates: start: 19990601, end: 20011115

REACTIONS (5)
  - ABDOMINAL PAIN UPPER [None]
  - ADVERSE EVENT [None]
  - CEREBROVASCULAR ACCIDENT [None]
  - DRUG HYPERSENSITIVITY [None]
  - MULTIPLE FRACTURES [None]
